FAERS Safety Report 5406202-X (Version None)
Quarter: 2007Q3

REPORT INFORMATION
  Report Type: 
  Country: None (occurrence: None)
  Receive Date: 20070806
  Receipt Date: 20070727
  Transmission Date: 20080115
  Serious: Yes (Life-Threatening)
  Sender: FDA-Public Use
  Company Number: HQWYE239327JUL07

PATIENT
  Age: 43 Year
  Sex: Female

DRUGS (6)
  1. PROPRANOLOL HYDROCHLORIDE [Suspect]
     Indication: THYROTOXIC CRISIS
     Route: 048
     Dates: start: 20050903
  2. CARBIMAZOLE [Concomitant]
     Indication: THYROTOXIC CRISIS
     Dosage: UNSPECIFIED
     Route: 048
  3. CEFTRIAXONE [Concomitant]
     Indication: URINARY TRACT INFECTION
     Dosage: UNSPECIFIED
     Route: 042
     Dates: start: 20050903
  4. PROPYLTHIOURACIL [Concomitant]
     Indication: THYROTOXIC CRISIS
     Dosage: 200 MG ONCE
     Route: 048
     Dates: start: 20050903, end: 20050903
  5. PROPYLTHIOURACIL [Concomitant]
     Route: 048
     Dates: start: 20050903
  6. HYDROCORTISONE [Concomitant]
     Indication: THYROTOXIC CRISIS
     Route: 042
     Dates: start: 20050903

REACTIONS (2)
  - CARDIO-RESPIRATORY ARREST [None]
  - CIRCULATORY COLLAPSE [None]
